FAERS Safety Report 24760878 (Version 2)
Quarter: 2025Q3

REPORT INFORMATION
  Report Type: Spontaneous
  Country: US (occurrence: US)
  Receive Date: 20241220
  Receipt Date: 20250803
  Transmission Date: 20251021
  Serious: Yes (Other)
  Sender: ALEXION PHARMACEUTICALS
  Company Number: US-ASTRAZENECA-202412USA011542US

PATIENT
  Sex: Female
  Weight: 74.739 kg

DRUGS (5)
  1. FASLODEX [Suspect]
     Active Substance: FULVESTRANT
     Route: 065
  2. FASLODEX [Suspect]
     Active Substance: FULVESTRANT
  3. IBRANCE [Concomitant]
     Active Substance: PALBOCICLIB
     Route: 065
  4. EXEMESTANE [Concomitant]
     Active Substance: EXEMESTANE
     Route: 065
  5. PALBOCICLIB [Concomitant]
     Active Substance: PALBOCICLIB
     Route: 065

REACTIONS (6)
  - Platelet count decreased [Unknown]
  - Neutrophil count decreased [Unknown]
  - Hepatic cirrhosis [Unknown]
  - Hepatic steatosis [Unknown]
  - Thrombopoietin level abnormal [Unknown]
  - Hypersplenism [Unknown]
